FAERS Safety Report 9832526 (Version 1)
Quarter: 2014Q1

REPORT INFORMATION
  Report Type: Spontaneous
  Country: ZA (occurrence: ZA)
  Receive Date: 20140121
  Receipt Date: 20140121
  Transmission Date: 20141002
  Serious: Yes (Death, Hospitalization, Other)
  Sender: FDA-Public Use
  Company Number: ZA-AMGEN-ZAFSP2014003651

PATIENT
  Age: 64 Year
  Sex: Female

DRUGS (3)
  1. ENBREL [Suspect]
     Indication: RHEUMATOID ARTHRITIS
     Dosage: 50 MG, WEEKLY
     Route: 058
     Dates: start: 20130117
  2. METHOTREXATE [Concomitant]
     Dosage: 6 (UNSPECIFIED) WEEKLY
     Dates: start: 2010
  3. VITAMIN C                          /00008001/ [Concomitant]
     Dosage: ONE (UNSPECIFIED) DAILY

REACTIONS (5)
  - Death [Fatal]
  - Coma [Unknown]
  - Gout [Unknown]
  - Sepsis [Unknown]
  - Salmonellosis [Unknown]
